FAERS Safety Report 4958709-7 (Version None)
Quarter: 2006Q1

REPORT INFORMATION
  Report Type: 
  Country: None (occurrence: None)
  Receive Date: 20060127
  Receipt Date: 20050127
  Transmission Date: 20060701
  Serious: Yes (Hospitalization, Other)
  Sender: FDA-Public Use
  Company Number: 05-01-0123

PATIENT
  Age: 44 Year
  Sex: Female
  Weight: 74.3899 kg

DRUGS (2)
  1. CLOZAPINE [Suspect]
     Indication: SCHIZOAFFECTIVE DISORDER
     Dosage: 400MG QD, ORAL
     Route: 048
     Dates: start: 20000501
  2. WELLBUTRIN [Suspect]
     Indication: DEPRESSION
     Dosage: X1 300MG QD
     Dates: start: 20011008, end: 20050127

REACTIONS (1)
  - CONVULSION [None]
